FAERS Safety Report 9200277 (Version 4)
Quarter: 2013Q2

REPORT INFORMATION
  Report Type: Report from Study
  Country: CA (occurrence: CA)
  Receive Date: 20130329
  Receipt Date: 20130416
  Transmission Date: 20140414
  Serious: Yes (Other)
  Sender: FDA-Public Use
  Company Number: CA-ABBOTT-13P-028-1068820-00

PATIENT
  Age: 76 Year
  Sex: Male

DRUGS (2)
  1. HUMIRA [Suspect]
     Indication: CROHN^S DISEASE
     Route: 058
     Dates: start: 20121119, end: 20130318
  2. HUMIRA [Suspect]
     Dates: start: 20130403

REACTIONS (3)
  - Local swelling [Unknown]
  - Abscess [Unknown]
  - Rash [Unknown]
